FAERS Safety Report 22182708 (Version 1)
Quarter: 2023Q2

REPORT INFORMATION
  Report Type: Spontaneous
  Country: DE (occurrence: DE)
  Receive Date: 20230406
  Receipt Date: 20230406
  Transmission Date: 20230722
  Serious: Yes (Other)
  Sender: FDA-Public Use
  Company Number: DE-EUSA PHARMA (UK) LIMITED-2023DE000193

PATIENT

DRUGS (14)
  1. DOXORUBICIN [Suspect]
     Active Substance: DOXORUBICIN
     Indication: Neuroblastoma
     Dosage: 30 MG/M2, QD, ON DAYS 6 AND 7, OVER 4 HOURS
     Route: 042
  2. CISPLATIN [Suspect]
     Active Substance: CISPLATIN
     Indication: Neuroblastoma
     Dosage: 40 MG/M2, QD, CONTINUOUS INFUSION OVER 96 HOURS
     Route: 065
  3. DACARBAZINE [Suspect]
     Active Substance: DACARBAZINE
     Indication: Neuroblastoma
     Dosage: 200 MG/M2, QD, ON DAYS 1 TO 5 OVER 1 HOUR
     Route: 065
  4. VINDESINE [Suspect]
     Active Substance: VINDESINE
     Indication: Neuroblastoma
     Dosage: 3 MG/M2, ON DAY 1 OVER 1 HOUR
     Route: 042
  5. VINCRISTINE [Suspect]
     Active Substance: VINCRISTINE
     Indication: Neuroblastoma
     Dosage: 1.5 MG/M2 ON DAYS 1 AND 8, OVER 1 HOUR
     Route: 042
  6. ETOPOSIDE [Suspect]
     Active Substance: ETOPOSIDE
     Indication: Neuroblastoma
     Dosage: 100 MG/M2, QD, CONTINUOUS INFUSION OVER 96 HOURS
     Route: 065
  7. DINUTUXIMAB BETA [Suspect]
     Active Substance: DINUTUXIMAB BETA
     Indication: Neuroblastoma
     Dosage: CYCLE 1,10 MG/M2, QD CONTINUOUS INFUSION
     Route: 065
  8. DINUTUXIMAB BETA [Suspect]
     Active Substance: DINUTUXIMAB BETA
     Dosage: CYCLE 2,10 MG/M2, QD CONTINUOUS INFUSION
     Route: 065
  9. IFOSFAMIDE [Suspect]
     Active Substance: IFOSFAMIDE
     Indication: Neuroblastoma
     Dosage: 1.5 G/M2, QD, CONTINUOUS INFUSION OVER 120 HOURS
     Route: 065
  10. METAMIZOLE [Concomitant]
     Active Substance: METAMIZOLE
     Indication: Product used for unknown indication
     Dosage: 80MG/KG/DAY,CONTINUOUS DAY5TO10 OR ASLONGASNEEDED
     Route: 065
  11. MORPHINE [Concomitant]
     Active Substance: MORPHINE
     Indication: Product used for unknown indication
     Dosage: 30 MCG/KG/HR;AS LONGASNEEDED AND FROM CYCLE 2 PRN
     Route: 042
  12. GABAPENTIN [Concomitant]
     Active Substance: GABAPENTIN
     Indication: Product used for unknown indication
     Dosage: 2 X 10 MG/KG/DAY; DAY 4
     Route: 048
  13. GABAPENTIN [Concomitant]
     Active Substance: GABAPENTIN
     Dosage: 3X10 MG/KG/DAY; DAY 5TODAY10 OR ASLONGERASNEEDED
     Route: 048
  14. GABAPENTIN [Concomitant]
     Active Substance: GABAPENTIN
     Dosage: 10 MG/KG/DAY; DAY 3
     Route: 048

REACTIONS (1)
  - Malignant neoplasm progression [Unknown]
